FAERS Safety Report 20017470 (Version 3)
Quarter: 2021Q4

REPORT INFORMATION
  Report Type: Report from Study
  Country: US (occurrence: US)
  Receive Date: 20211030
  Receipt Date: 20211220
  Transmission Date: 20220303
  Serious: Yes (Hospitalization, Other)
  Sender: FDA-Public Use
  Company Number: US-TEVA-2021-US-1970683

PATIENT
  Age: 18 Year
  Sex: Male
  Weight: 128.8 kg

DRUGS (10)
  1. METHOTREXATE [Suspect]
     Active Substance: METHOTREXATE
     Indication: Acute lymphocytic leukaemia
     Route: 048
     Dates: start: 20210811, end: 20211011
  2. METHOTREXATE [Suspect]
     Active Substance: METHOTREXATE
     Route: 048
     Dates: start: 20211103
  3. VINCRISTINE [Suspect]
     Active Substance: VINCRISTINE
     Indication: Acute lymphocytic leukaemia
     Dosage: 2 MILLIGRAM, DAYS 1,29, AND 57
     Route: 042
     Dates: start: 20210811
  4. PREDNISONE [Suspect]
     Active Substance: PREDNISONE
     Indication: Acute lymphocytic leukaemia
     Dosage: 100 MILLIGRAM DAILY; DAYS 1-5, 29-33, AND 57-61,
     Route: 048
     Dates: start: 20210811, end: 20211011
  5. PREDNISONE [Suspect]
     Active Substance: PREDNISONE
     Dosage: 100 MILLIGRAM DAILY; DAYS 1-5, 29-33, 57-61; ORAL
     Route: 048
     Dates: start: 20211103
  6. METHOTREXATE [Suspect]
     Active Substance: METHOTREXATE
     Indication: Acute lymphocytic leukaemia
     Dosage: DAY 1 AND 29 OF MAINTENANCE CYCLE
     Route: 037
  7. METHOTREXATE [Suspect]
     Active Substance: METHOTREXATE
     Dosage: DAY 1 AND 29 OF MAINTENANCE CYCLE
     Route: 037
     Dates: start: 20211103
  8. MERCAPTOPURINE [Suspect]
     Active Substance: MERCAPTOPURINE
     Indication: Acute lymphocytic leukaemia
     Dosage: 200MG X 4 DAYS/WEEK
     Route: 048
     Dates: start: 20211025
  9. MERCAPTOPURINE [Suspect]
     Active Substance: MERCAPTOPURINE
     Dosage: 175MG X 3 DAYS/WEEKDAYS 1-84,
     Route: 048
     Dates: start: 20210811, end: 20211011
  10. OXYCODONE [Concomitant]
     Active Substance: OXYCODONE
     Dates: start: 20210312

REACTIONS (3)
  - Meningitis [Recovered/Resolved]
  - Cerebral salt-wasting syndrome [Recovered/Resolved]
  - Intracranial pressure increased [Recovered/Resolved]

NARRATIVE: CASE EVENT DATE: 20210101
